FAERS Safety Report 5077369-0 (Version None)
Quarter: 2006Q3

REPORT INFORMATION
  Report Type: 
  Country: None (occurrence: None)
  Receive Date: 20060810
  Receipt Date: 20060203
  Transmission Date: 20061208
  Serious: No
  Sender: FDA-Public Use
  Company Number: US-GLAXOSMITHKLINE-A0592289A

PATIENT
  Age: 69 Year

DRUGS (4)
  1. PAXIL [Suspect]
     Indication: DEPRESSION
     Dosage: 20MG PER DAY
     Route: 048
     Dates: start: 20030101
  2. LIPITOR [Concomitant]
  3. ASPIRIN [Concomitant]
  4. CALCIUM GLUCONATE [Concomitant]

REACTIONS (1)
  - DYSPNOEA [None]
